FAERS Safety Report 15677724 (Version 1)
Quarter: 2018Q4

REPORT INFORMATION
  Report Type: Report from Study
  Country: JP (occurrence: JP)
  Receive Date: 20181130
  Receipt Date: 20181130
  Transmission Date: 20190205
  Serious: Yes (Life-Threatening, Hospitalization)
  Sender: FDA-Public Use
  Company Number: JP-BEH-2018097249

PATIENT
  Age: 72 Year
  Sex: Male
  Weight: 65.4 kg

DRUGS (16)
  1. SANGLOPOR [Concomitant]
     Active Substance: HUMAN IMMUNOGLOBULIN G
     Indication: EXTRADURAL ABSCESS
     Dosage: UNK
     Route: 065
     Dates: start: 20180621, end: 20181023
  2. SANGLOPOR [Concomitant]
     Active Substance: HUMAN IMMUNOGLOBULIN G
     Indication: OSTEOMYELITIS
  3. KAYTWO [Concomitant]
     Active Substance: MENATETRENONE
     Indication: ANTICOAGULANT THERAPY
     Dosage: 20 MG, TOT
     Route: 065
     Dates: start: 20180620, end: 20180620
  4. ZYVOX [Concomitant]
     Active Substance: LINEZOLID
     Indication: OSTEOMYELITIS
  5. GASTER [Concomitant]
     Active Substance: FAMOTIDINE
     Indication: PROPHYLAXIS
     Dosage: UNK
     Route: 065
     Dates: start: 20180620, end: 20180621
  6. FOSTOIN [Concomitant]
     Active Substance: FOSPHENYTOIN SODIUM
     Indication: PROPHYLAXIS
     Dosage: UNK
     Route: 065
     Dates: start: 20180620, end: 20180620
  7. ROPION [Concomitant]
     Active Substance: FLURBIPROFEN AXETIL
     Indication: PROCEDURAL PAIN
     Dosage: UNK
     Route: 065
     Dates: start: 20180621, end: 20180621
  8. WARFARIN POTASSIUM [Concomitant]
     Active Substance: WARFARIN POTASSIUM
     Indication: PROPHYLAXIS
     Dosage: 2.5 MG, UNK
     Route: 048
     Dates: start: 20180627
  9. ZYVOX [Concomitant]
     Active Substance: LINEZOLID
     Indication: EXTRADURAL ABSCESS
     Dosage: UNK
     Route: 065
     Dates: start: 20180620, end: 20180702
  10. BERIPLEX P/N [Suspect]
     Active Substance: COAGULATION FACTOR IX HUMAN\COAGULATION FACTOR VII HUMAN\COAGULATION FACTOR X HUMAN\PROTEIN C\PROTEIN S HUMAN\PROTHROMBIN
     Indication: SURGERY
     Dosage: 1000 IU, UNK
     Route: 042
     Dates: start: 20180620
  11. HEPARIN [Concomitant]
     Active Substance: HEPARIN SODIUM
     Indication: ATRIAL FIBRILLATION
     Dosage: 10000 UNK, UNK
     Route: 065
     Dates: start: 20180623, end: 20180704
  12. HEPARIN [Concomitant]
     Active Substance: HEPARIN SODIUM
     Indication: PROPHYLAXIS
  13. WARFARIN POTASSIUM [Concomitant]
     Active Substance: WARFARIN POTASSIUM
     Indication: ATRIAL FIBRILLATION
     Dosage: 2.5 MG, UNK
     Route: 048
     Dates: end: 20180619
  14. BISOPROLOL FUMARATE. [Concomitant]
     Active Substance: BISOPROLOL FUMARATE
     Route: 048
  15. MEROPENEM                          /01250502/ [Concomitant]
     Active Substance: MEROPENEM
     Indication: EXTRADURAL ABSCESS
     Dosage: UNK
     Route: 065
     Dates: start: 20180620, end: 20180627
  16. MEROPENEM                          /01250502/ [Concomitant]
     Active Substance: MEROPENEM
     Indication: OSTEOMYELITIS

REACTIONS (2)
  - Disseminated intravascular coagulation [Recovered/Resolved]
  - Muscle abscess [Recovered/Resolved]

NARRATIVE: CASE EVENT DATE: 20180702
